FAERS Safety Report 4424318-1 (Version None)
Quarter: 2004Q3

REPORT INFORMATION
  Report Type: 
  Country: None (occurrence: None)
  Receive Date: 20040812
  Receipt Date: 20040729
  Transmission Date: 20050211
  Serious: Yes (Death, Other)
  Sender: FDA-Public Use
  Company Number: ES-BRISTOL-MYERS SQUIBB COMPANY-12658019

PATIENT
  Age: 67 Year
  Sex: Male

DRUGS (2)
  1. METHOTREXATE [Suspect]
     Indication: RHEUMATOID ARTHRITIS
     Dosage: DISCONTINUED D/T PULMONARY INTERSTITIAL FIBROSIS
     Route: 048
  2. PREDNISONE [Suspect]
     Indication: RHEUMATOID ARTHRITIS

REACTIONS (2)
  - HEPATITIS CHRONIC ACTIVE [None]
  - INTERSTITIAL LUNG DISEASE [None]
